FAERS Safety Report 4313251-1 (Version None)
Quarter: 2004Q1

REPORT INFORMATION
  Report Type: 
  Country: None (occurrence: None)
  Receive Date: 20040304
  Receipt Date: 20040218
  Transmission Date: 20041129
  Serious: Yes (Hospitalization)
  Sender: FDA-Public Use
  Company Number: ZONI001248

PATIENT
  Age: 48 Year
  Sex: Female
  Weight: 68.0396 kg

DRUGS (6)
  1. ZONEGRAN [Suspect]
     Indication: NEURALGIA
     Dosage: 200 MG DAILY ORAL
     Route: 048
     Dates: start: 20030715, end: 20030901
  2. SKELAXIN [Concomitant]
  3. PAMELOR [Concomitant]
  4. CARBATROL (CARBAMAZEPINE (SR)) [Concomitant]
  5. HYDROCODONE (HYDROCODONE) [Concomitant]
  6. CARBATROL (CARBAMAZEPINE (SR)) [Concomitant]

REACTIONS (4)
  - ABDOMINAL PAIN [None]
  - CALCULUS URETERIC [None]
  - DYSURIA [None]
  - NEPHROLITHIASIS [None]
